FAERS Safety Report 10517535 (Version 1)
Quarter: 2014Q4

REPORT INFORMATION
  Report Type: Spontaneous
  Country: US (occurrence: US)
  Receive Date: 20141014
  Receipt Date: 20141014
  Transmission Date: 20150528
  Serious: Yes (Hospitalization)
  Sender: FDA-Public Use
  Company Number: US-BAUSCH-BL-2014-006350

PATIENT
  Sex: Male

DRUGS (1)
  1. XENAZINE [Suspect]
     Active Substance: TETRABENAZINE
     Indication: HUNTINGTON^S DISEASE
     Dosage: TAKE ONE TABLET IN THE MORNING, ONE AND ONE-HALF TABLETS AT 1 PM, AND ONE TABLET IN THE EVENING
     Route: 048
     Dates: start: 201008

REACTIONS (1)
  - Investigation [Unknown]
